FAERS Safety Report 6827036-5 (Version None)
Quarter: 2010Q2

REPORT INFORMATION
  Report Type: 
  Country: None (occurrence: None)
  Receive Date: 20100520
  Receipt Date: 20090416
  Transmission Date: 20101027
  Serious: Yes (Other)
  Sender: FDA-Public Use
  Company Number: 2009199290

PATIENT
  Age: 63 Year
  Sex: Female
  Weight: 81 kg

DRUGS (11)
  1. PROVERA [Suspect]
     Indication: HORMONE REPLACEMENT THERAPY
     Dosage: ORAL
     Route: 048
     Dates: start: 19780101, end: 20000101
  2. PREMARIN [Suspect]
     Indication: HORMONE REPLACEMENT THERAPY
     Dates: start: 19780101, end: 20000101
  3. PREMPRO [Suspect]
     Indication: HORMONE REPLACEMENT THERAPY
     Dates: start: 20000101, end: 20010101
  4. LEVOTHROID [Concomitant]
  5. KLOR-CON [Concomitant]
  6. PROTONIX [Concomitant]
  7. ALLOPURINOL [Concomitant]
  8. LASIX (FUROSMIDE) [Concomitant]
  9. HYZAAR [Concomitant]
  10. ZYRTEC [Concomitant]
  11. ISOMERIDE (DEXFENFLURAMINE HYDROCHLORIDE) [Concomitant]

REACTIONS (1)
  - BREAST CANCER FEMALE [None]
